FAERS Safety Report 24062387 (Version 3)
Quarter: 2024Q4

REPORT INFORMATION
  Report Type: Spontaneous
  Country: US (occurrence: US)
  Receive Date: 20240708
  Receipt Date: 20241008
  Transmission Date: 20250115
  Serious: No
  Sender: BAUSCH AND LOMB
  Company Number: US-BAUSCHBL-2024BNL029377

PATIENT
  Age: 72 Year
  Sex: Female

DRUGS (3)
  1. XIIDRA [Suspect]
     Active Substance: LIFITEGRAST
     Indication: Dry eye
     Route: 047
     Dates: start: 202209
  2. XIIDRA [Suspect]
     Active Substance: LIFITEGRAST
     Dosage: 3-4 TIMES A DAY
     Route: 047
  3. THERATEARS [Concomitant]
     Active Substance: CARBOXYMETHYLCELLULOSE SODIUM
     Indication: Product used for unknown indication
     Route: 065

REACTIONS (11)
  - Eye disorder [Unknown]
  - Blood pressure abnormal [Unknown]
  - Eye pain [Unknown]
  - Eye irritation [Unknown]
  - Eye pruritus [Unknown]
  - Product use issue [Unknown]
  - Inappropriate schedule of product administration [Unknown]
  - Inability to afford medication [Unknown]
  - Product packaging quantity issue [Unknown]
  - Expired product administered [Unknown]
  - Therapy interrupted [Unknown]

NARRATIVE: CASE EVENT DATE: 20240101
